FAERS Safety Report 5711021-0 (Version None)
Quarter: 2008Q2

REPORT INFORMATION
  Report Type: 
  Country: None (occurrence: None)
  Receive Date: 20080421
  Receipt Date: 20080415
  Transmission Date: 20081010
  Serious: Yes (Other)
  Sender: FDA-Public Use
  Company Number: BR-ASTRAZENECA-2008UW06998

PATIENT
  Age: 47 Year
  Sex: Female
  Weight: 56 kg

DRUGS (8)
  1. ARIMIDEX [Suspect]
     Indication: BREAST CANCER
     Route: 048
     Dates: start: 20060501
  2. CALCIUM [Concomitant]
     Indication: OSTEOPOROSIS
     Route: 048
     Dates: start: 20060501
  3. VITAMIN D [Concomitant]
     Indication: OSTEOPOROSIS
     Route: 048
     Dates: start: 20060501
  4. ACTONEL [Concomitant]
     Indication: OSTEOPOROSIS
     Route: 048
     Dates: start: 20050101
  5. VITAMIN E [Concomitant]
     Indication: OSTEOPOROSIS
     Route: 048
     Dates: start: 20060101
  6. SYNTHROID [Concomitant]
     Indication: HYPOTHYROIDISM
     Route: 048
  7. PANTOPRAZOLE SODIUM [Concomitant]
     Indication: REFLUX GASTRITIS
     Dosage: TAKEN }6 YEARS
     Route: 048
  8. APLAUSE [Concomitant]
     Indication: MENOPAUSE
     Route: 048
     Dates: start: 20060501

REACTIONS (5)
  - ARTHRALGIA [None]
  - BREAST CANCER RECURRENT [None]
  - HOT FLUSH [None]
  - OSTEONECROSIS [None]
  - VULVOVAGINAL DRYNESS [None]
